FAERS Safety Report 4753497-1 (Version None)
Quarter: 2005Q3

REPORT INFORMATION
  Report Type: 
  Country: None (occurrence: None)
  Receive Date: 20050826
  Receipt Date: 20050818
  Transmission Date: 20060218
  Serious: Yes (Hospitalization)
  Sender: FDA-Public Use
  Company Number: US-GLAXOSMITHKLINE-A0570810A

PATIENT
  Age: 56 Year
  Sex: Female

DRUGS (2)
  1. TUMS [Suspect]
     Indication: DYSPEPSIA
     Route: 048
     Dates: start: 20050712, end: 20050712
  2. ALUMINUM HYDROXIDE AND MAGNESIUM TRISILICATE [Suspect]
     Indication: DYSPEPSIA
     Route: 048
     Dates: start: 20050712, end: 20050712

REACTIONS (4)
  - CYANOSIS [None]
  - HYPERSENSITIVITY [None]
  - RASH GENERALISED [None]
  - SWOLLEN TONGUE [None]
